FAERS Safety Report 6840662-2 (Version None)
Quarter: 2010Q3

REPORT INFORMATION
  Report Type: 
  Country: None (occurrence: None)
  Receive Date: 20100714
  Receipt Date: 20100705
  Transmission Date: 20110219
  Serious: Yes (Hospitalization)
  Sender: FDA-Public Use
  Company Number: GB-PFIZER INC-2010077495

PATIENT
  Age: 74 Year
  Sex: Male
  Weight: 63 kg

DRUGS (9)
  1. PREDNISOLONE [Suspect]
     Indication: PROSTATE CANCER
     Dosage: 5 MG, 2X/DAY
     Route: 048
  2. PREDNISOLONE [Suspect]
     Indication: DECREASED APPETITE
  3. BLINDED *NO SUBJECT DRUG [Suspect]
     Indication: PROSTATE CANCER
     Dosage: 37.5 MG, 1X/DAY
     Route: 048
     Dates: start: 20100430, end: 20100621
  4. BLINDED *PLACEBO [Suspect]
     Indication: PROSTATE CANCER
     Dosage: 37.5 MG, 1X/DAY
     Route: 048
     Dates: start: 20100430, end: 20100621
  5. SUNITINIB MALATE [Suspect]
     Indication: PROSTATE CANCER
     Dosage: 37.5 MG, 1X/DAY
     Route: 048
     Dates: start: 20100430, end: 20100621
  6. PARACETAMOL [Concomitant]
     Indication: PAIN
     Dosage: UNK
  7. OMEPRAZOLE [Concomitant]
     Indication: PROPHYLAXIS
     Dosage: UNK
  8. OXYCONTIN [Concomitant]
     Indication: PAIN
     Dosage: UNK
  9. CLEXANE [Concomitant]
     Indication: ANTICOAGULANT THERAPY
     Dosage: UNK

REACTIONS (1)
  - OEDEMA PERIPHERAL [None]
